FAERS Safety Report 13597702 (Version 1)
Quarter: 2017Q2

REPORT INFORMATION
  Report Type: Spontaneous
  Country: US (occurrence: US)
  Receive Date: 20170531
  Receipt Date: 20170531
  Transmission Date: 20170830
  Serious: Yes (Other)
  Sender: FDA-Public Use
  Company Number: None

PATIENT
  Age: 23 Year
  Sex: Female
  Weight: 87.75 kg

DRUGS (1)
  1. PHENAZOPYRIDINE. [Suspect]
     Active Substance: PHENAZOPYRIDINE
     Indication: BLADDER DISCOMFORT
     Dosage: ?          QUANTITY:6 TABLET(S);?
     Route: 048
     Dates: start: 20170528, end: 20170529

REACTIONS (3)
  - Vulvovaginal pruritus [None]
  - Vulvovaginal discomfort [None]
  - Vulvovaginal burning sensation [None]

NARRATIVE: CASE EVENT DATE: 20170529
